FAERS Safety Report 6940918-9 (Version None)
Quarter: 2010Q3

REPORT INFORMATION
  Report Type: 
  Country: None (occurrence: None)
  Receive Date: 20100825
  Receipt Date: 20100817
  Transmission Date: 20110219
  Serious: Yes (Hospitalization)
  Sender: FDA-Public Use
  Company Number: A0788284A

PATIENT
  Age: 51 Year
  Sex: Male

DRUGS (11)
  1. AVANDIA [Suspect]
     Indication: DIABETES MELLITUS
     Dosage: 8MG PER DAY
     Route: 048
     Dates: start: 19990101, end: 20070209
  2. AMLODIPINE [Concomitant]
  3. LEVOTHYROXINE [Concomitant]
  4. LISINOPRIL [Concomitant]
  5. NITROGLYCERIN [Concomitant]
  6. ISOSORBIDE DINITRATE [Concomitant]
  7. METOPROLOL [Concomitant]
  8. SIMVASTATIN [Concomitant]
  9. ASPIRIN [Concomitant]
  10. GLYBURIDE [Concomitant]
  11. INHALERS [Concomitant]

REACTIONS (4)
  - CARDIAC FAILURE CONGESTIVE [None]
  - CORONARY ARTERY DISEASE [None]
  - NEPHROPATHY [None]
  - RENAL FAILURE ACUTE [None]
